FAERS Safety Report 5320951-3 (Version None)
Quarter: 2007Q2

REPORT INFORMATION
  Report Type: 
  Country: None (occurrence: None)
  Receive Date: 20070504
  Receipt Date: 20070423
  Transmission Date: 20071010
  Serious: Yes (Death, Other)
  Sender: FDA-Public Use
  Company Number: 2528

PATIENT
  Age: 53 Year
  Sex: Male

DRUGS (1)
  1. ONTAK [Suspect]
     Indication: LYMPHOMA
     Dosage: 18 UG/KG/D DAILY IV
     Route: 042
     Dates: start: 20070417, end: 20070419

REACTIONS (1)
  - SUDDEN DEATH [None]
